FAERS Safety Report 24559653 (Version 1)
Quarter: 2024Q4

REPORT INFORMATION
  Report Type: Spontaneous
  Country: AU (occurrence: AU)
  Receive Date: 20241029
  Receipt Date: 20241029
  Transmission Date: 20250115
  Serious: Yes (Other)
  Sender: MERCK
  Company Number: AU-009507513-2410AUS011837

PATIENT
  Age: 79 Year
  Sex: Female

DRUGS (4)
  1. MOLNUPIRAVIR [Suspect]
     Active Substance: MOLNUPIRAVIR
     Dosage: 400 MILLIGRAM, INTERVAL: 2 DAY
     Route: 048
     Dates: start: 20240102
  2. DOXEPIN HYDROCHLORIDE [Concomitant]
     Active Substance: DOXEPIN HYDROCHLORIDE
     Dosage: UNK
  3. METOPROLOL [Concomitant]
     Active Substance: METOPROLOL
     Dosage: UNK
  4. PREMARIN [Concomitant]
     Active Substance: ESTROGENS, CONJUGATED
     Dosage: UNK

REACTIONS (3)
  - Hallucination [Unknown]
  - Abnormal dreams [Unknown]
  - Somnambulism [Unknown]

NARRATIVE: CASE EVENT DATE: 20240102
